FAERS Safety Report 5169991-8 (Version None)
Quarter: 2006Q4

REPORT INFORMATION
  Report Type: 
  Country: None (occurrence: None)
  Receive Date: 20061212
  Receipt Date: 20061109
  Transmission Date: 20070319
  Serious: Yes (Hospitalization)
  Sender: FDA-Public Use
  Company Number: JP-JPN-A200604804

PATIENT
  Age: 90 Year
  Sex: Female
  Weight: 40 kg

DRUGS (7)
  1. VALTREX [Suspect]
     Indication: HERPES ZOSTER
     Dosage: 1000MG THREE TIMES PER DAY
     Route: 048
     Dates: start: 20061031, end: 20061102
  2. MEVALOTIN [Concomitant]
     Dosage: 2UNIT PER DAY
     Route: 048
     Dates: start: 19910101, end: 20061102
  3. FERO-GRADUMET [Concomitant]
     Dosage: 1UNIT PER DAY
     Route: 048
     Dates: start: 20020101, end: 20061102
  4. CEROCRAL [Concomitant]
     Indication: DIZZINESS
     Dosage: 3UNIT PER DAY
     Route: 048
     Dates: end: 20061102
  5. KALLIKREIN [Concomitant]
     Indication: DIZZINESS
     Dosage: 6UNIT PER DAY
     Route: 048
     Dates: end: 20061102
  6. EBASTEL [Concomitant]
     Dosage: 1UNIT PER DAY
     Route: 048
     Dates: end: 20061102
  7. GASMOTIN [Concomitant]
     Dosage: 3UNIT PER DAY
     Route: 048
     Dates: end: 20061102

REACTIONS (3)
  - NAUSEA [None]
  - RENAL FAILURE [None]
  - VOMITING [None]
